FAERS Safety Report 18568488 (Version 1)
Quarter: 2020Q4

REPORT INFORMATION
  Report Type: Spontaneous
  Country: FR (occurrence: FR)
  Receive Date: 20201202
  Receipt Date: 20201202
  Transmission Date: 20210114
  Serious: Yes (Life-Threatening)
  Sender: FDA-Public Use
  Company Number: FR-TEVA-2020-FR-1854235

PATIENT
  Age: 89 Year
  Sex: Female
  Weight: 87.7 kg

DRUGS (10)
  1. PERINDOPRIL [Suspect]
     Active Substance: PERINDOPRIL
     Indication: HYPERTENSION
     Dosage: 2 MG
     Route: 048
     Dates: end: 20201025
  2. METFORMINE [Suspect]
     Active Substance: METFORMIN HYDROCHLORIDE
     Indication: TYPE 2 DIABETES MELLITUS
     Dosage: 500 MG
     Route: 048
     Dates: end: 20201025
  3. FUROSEMIDE. [Suspect]
     Active Substance: FUROSEMIDE
     Indication: HYPERTENSION
     Dosage: 20 MG
     Route: 048
     Dates: end: 20201025
  4. SPECIAFOLDINE 5 MG, COMPRIME [Suspect]
     Active Substance: FOLIC ACID
     Indication: PRODUCT USED FOR UNKNOWN INDICATION
     Dosage: 5 MG
     Route: 048
     Dates: end: 20201025
  5. PARACETAMOL [Suspect]
     Active Substance: ACETAMINOPHEN
     Indication: PRODUCT USED FOR UNKNOWN INDICATION
     Route: 048
     Dates: end: 20201025
  6. ESCITALOPRAM [Suspect]
     Active Substance: ESCITALOPRAM OXALATE
     Indication: PRODUCT USED FOR UNKNOWN INDICATION
     Dosage: 5 MG
     Route: 048
     Dates: end: 20201025
  7. OMEPRAZOLE. [Suspect]
     Active Substance: OMEPRAZOLE
     Indication: PRODUCT USED FOR UNKNOWN INDICATION
     Dosage: 20 MG
     Route: 048
     Dates: end: 20201025
  8. ATORVASTATINE [Suspect]
     Active Substance: ATORVASTATIN
     Indication: DYSLIPIDAEMIA
     Dosage: 10 MG
     Route: 048
     Dates: end: 20201025
  9. METOPROLOL (TARTRATE DE) [Concomitant]
     Active Substance: METOPROLOL TARTRATE
  10. PREVISCAN 20 MG, COMPRIME SECABLE [Suspect]
     Active Substance: FLUINDIONE
     Indication: ATRIAL FIBRILLATION
     Dosage: 0.5 DF
     Route: 048
     Dates: end: 20201025

REACTIONS (2)
  - Hemiplegia [Recovering/Resolving]
  - Cerebral haematoma [Recovering/Resolving]

NARRATIVE: CASE EVENT DATE: 20201025
